FAERS Safety Report 6933843-0 (Version None)
Quarter: 2010Q3

REPORT INFORMATION
  Report Type: 
  Country: None (occurrence: None)
  Receive Date: 20100820
  Receipt Date: 20100812
  Transmission Date: 20110219
  Serious: Yes (Hospitalization, Other)
  Sender: FDA-Public Use
  Company Number: IN-ELI_LILLY_AND_COMPANY-IN200903000536

PATIENT
  Sex: Female
  Weight: 44 kg

DRUGS (2)
  1. GEMCITABINE HCL [Suspect]
     Indication: BREAST CANCER METASTATIC
     Dosage: 1000MG/M2 (ACTUAL DOSE 1360MG) ON D1 AND D8 EVERY 3 WEEKS
     Route: 042
     Dates: start: 20090214
  2. VINFLUNINE [Suspect]
     Indication: BREAST CANCER METASTATIC
     Dosage: 320 MG/M2 (ACTUAL DOSE 435MG) ON DAY 1 EVERY 3 WEEKS
     Route: 042
     Dates: start: 20090214

REACTIONS (5)
  - ANAEMIA [None]
  - DYSPHAGIA [None]
  - LEUKOPENIA [None]
  - NEUTROPENIA [None]
  - THROMBOCYTOPENIA [None]
